FAERS Safety Report 25266793 (Version 1)
Quarter: 2025Q2

REPORT INFORMATION
  Report Type: Spontaneous
  Country: AE (occurrence: AE)
  Receive Date: 20250505
  Receipt Date: 20250505
  Transmission Date: 20250717
  Serious: Yes (Death)
  Sender: ASTELLAS
  Company Number: AE-ASTELLAS-2025-AER-024224

PATIENT
  Sex: Female

DRUGS (1)
  1. VYLOY [Suspect]
     Active Substance: ZOLBETUXIMAB-CLZB
     Indication: Metastatic gastric cancer
     Route: 065
     Dates: start: 202412

REACTIONS (2)
  - Large intestine perforation [Fatal]
  - Off label use [Unknown]

NARRATIVE: CASE EVENT DATE: 20241201
